FAERS Safety Report 5135762-1 (Version None)
Quarter: 2006Q4

REPORT INFORMATION
  Report Type: 
  Country: None (occurrence: None)
  Receive Date: 20061024
  Receipt Date: 20061024
  Transmission Date: 20070319
  Serious: Yes (Hospitalization)
  Sender: FDA-Public Use
  Company Number: None

PATIENT
  Sex: Male

DRUGS (14)
  1. NAFCILLIN SODIUM [Suspect]
     Indication: PERITONITIS BACTERIAL
     Dosage: 6 GM  DAILY  IV
     Route: 042
     Dates: start: 20060811, end: 20060822
  2. NAFCILLIN SODIUM [Suspect]
     Indication: STAPHYLOCOCCAL BACTERAEMIA
     Dosage: 6 GM  DAILY  IV
     Route: 042
     Dates: start: 20060811, end: 20060822
  3. COTRIM D.S. [Suspect]
     Indication: PROPHYLAXIS
     Dosage: ONE TABLET  DAILY MON-FRI  PO
     Route: 048
     Dates: start: 20060808, end: 20060818
  4. CITALOPRAM [Concomitant]
  5. DOCUSATE [Concomitant]
  6. FERROUS SULFATE TAB [Concomitant]
  7. GABAPENTIN [Concomitant]
  8. LACTULOSE [Concomitant]
  9. METHADONE HCL [Concomitant]
  10. OMEPRAZOLE [Concomitant]
  11. OXYCODONE HCL [Concomitant]
  12. PROPRANOLOL [Concomitant]
  13. SENNA [Concomitant]
  14. VANCOMYCIN [Concomitant]

REACTIONS (1)
  - LEUKOPENIA [None]
